FAERS Safety Report 24243432 (Version 2)
Quarter: 2024Q3

REPORT INFORMATION
  Report Type: Report from Study
  Country: FR (occurrence: FR)
  Receive Date: 20240823
  Receipt Date: 20240921
  Transmission Date: 20241017
  Serious: Yes (Other)
  Sender: DAIICHI
  Company Number: FR-DSJP-DSE-2024-141040

PATIENT
  Sex: Female
  Weight: 62 kg

DRUGS (3)
  1. ENHERTU [Suspect]
     Active Substance: FAM-TRASTUZUMAB DERUXTECAN-NXKI
     Indication: HER2 low breast cancer
     Dosage: 4.4 MG/KG, CYCLIC
     Route: 065
     Dates: start: 20240522
  2. ENHERTU [Suspect]
     Active Substance: FAM-TRASTUZUMAB DERUXTECAN-NXKI
     Indication: Breast cancer metastatic
     Dosage: 3.2 MG/KG, CYCLIC
     Route: 065
     Dates: end: 20240807
  3. UNSPECIFIED INGREDIENT [Concomitant]
     Active Substance: UNSPECIFIED INGREDIENT
     Indication: Antiemetic supportive care
     Dosage: UNK
     Route: 065

REACTIONS (13)
  - Mallory-Weiss syndrome [Unknown]
  - Drug ineffective [Unknown]
  - Disease progression [Unknown]
  - Diarrhoea [Unknown]
  - Vomiting [Recovered/Resolved]
  - Haemorrhage [Unknown]
  - Gastrointestinal motility disorder [Recovered/Resolved]
  - Gastrointestinal infection [Unknown]
  - Nausea [Recovered/Resolved]
  - Gastrointestinal disorder [Unknown]
  - Lung disorder [Unknown]
  - Intentional product use issue [Recovered/Resolved]
  - Intentional product use issue [Recovered/Resolved]

NARRATIVE: CASE EVENT DATE: 20240522
